FAERS Safety Report 7010135-5 (Version None)
Quarter: 2010Q3

REPORT INFORMATION
  Report Type: 
  Country: None (occurrence: None)
  Receive Date: 20100923
  Receipt Date: 20100914
  Transmission Date: 20110219
  Serious: Yes (Other)
  Sender: FDA-Public Use
  Company Number: BR-PFIZER INC-2010116132

PATIENT
  Age: 44 Year
  Sex: Male
  Weight: 83 kg

DRUGS (1)
  1. VIBRAMICINA [Suspect]
     Dosage: UNK
     Route: 048

REACTIONS (2)
  - NAUSEA [None]
  - SYNCOPE [None]
